FAERS Safety Report 6084675-X (Version None)
Quarter: 2009Q1

REPORT INFORMATION
  Report Type: 
  Country: None (occurrence: None)
  Receive Date: 20090217
  Receipt Date: 20090211
  Transmission Date: 20090719
  Serious: Yes (Disabling, Other)
  Sender: FDA-Public Use
  Company Number: THQ2009A00685

PATIENT
  Sex: Female

DRUGS (1)
  1. LANSOPRAZOLE [Suspect]
     Indication: HIATUS HERNIA
     Route: 048

REACTIONS (9)
  - ABDOMINAL PAIN [None]
  - ACTIVITIES OF DAILY LIVING IMPAIRED [None]
  - BLOOD CALCIUM DECREASED [None]
  - COLITIS COLLAGENOUS [None]
  - COW'S MILK INTOLERANCE [None]
  - DIARRHOEA [None]
  - DRUG INEFFECTIVE [None]
  - GENERAL PHYSICAL HEALTH DETERIORATION [None]
  - VITAMIN D DECREASED [None]
